FAERS Safety Report 8560850-7 (Version None)
Quarter: 2012Q3

REPORT INFORMATION
  Report Type: 
  Country: None (occurrence: None)
  Receive Date: 20120802
  Receipt Date: 20120729
  Transmission Date: 20120928
  Serious: Yes (Disabling, Other)
  Sender: FDA-Public Use
  Company Number: US-PFIZER INC-2012183636

PATIENT
  Sex: Female
  Weight: 61.224 kg

DRUGS (11)
  1. LOVASTATIN [Concomitant]
     Indication: BLOOD CHOLESTEROL INCREASED
     Dosage: 20 MG, 3X/DAY
  2. XANAX [Concomitant]
     Dosage: 1 MG, AS NEEDED
  3. VITAMIN TAB [Concomitant]
     Dosage: UNK
  4. MULTI-VITAMINS [Concomitant]
     Dosage: UNK
  5. LYRICA [Suspect]
     Indication: BURNING SENSATION
     Dosage: 50 MG, 2X/DAY
     Route: 048
     Dates: start: 20120726, end: 20120701
  6. LISINOPRIL [Suspect]
     Indication: HYPERTENSION
     Dosage: 10 MG, 3X/DAY
  7. LYRICA [Suspect]
     Indication: PAIN IN EXTREMITY
  8. SYNTHROID [Concomitant]
     Indication: THYROID DISORDER
     Dosage: 50 UG, DAILY
  9. ASPIRIN [Concomitant]
     Indication: ANTICOAGULANT THERAPY
     Dosage: 81 MG, UNK
  10. FISH OIL [Concomitant]
     Dosage: UNK
  11. OXYBUTYNIN CHLORIDE [Concomitant]
     Indication: HYPERTONIC BLADDER
     Dosage: 10 MG, UNK

REACTIONS (19)
  - VISION BLURRED [None]
  - INFLUENZA LIKE ILLNESS [None]
  - DRY MOUTH [None]
  - HYPERTENSION [None]
  - PAIN [None]
  - GAIT DISTURBANCE [None]
  - MOBILITY DECREASED [None]
  - INSOMNIA [None]
  - DIZZINESS [None]
  - CHILLS [None]
  - HEADACHE [None]
  - PYREXIA [None]
  - MUSCLE SPASMS [None]
  - OEDEMA PERIPHERAL [None]
  - MALAISE [None]
  - NAUSEA [None]
  - ABDOMINAL PAIN UPPER [None]
  - FATIGUE [None]
  - PARAESTHESIA [None]
